FAERS Safety Report 7919551-8 (Version None)
Quarter: 2011Q4

REPORT INFORMATION
  Report Type: 
  Country: None (occurrence: None)
  Receive Date: 20111116
  Receipt Date: 20111116
  Transmission Date: 20120403
  Serious: Yes (Hospitalization)
  Sender: FDA-Public Use
  Company Number: None

PATIENT
  Age: 52 Year
  Sex: Male
  Weight: 77.3 kg

DRUGS (14)
  1. URSODIOL [Concomitant]
  2. COUMADIN [Suspect]
     Indication: DEEP VEIN THROMBOSIS
     Dosage: RECENT
  3. REMERON [Concomitant]
  4. LOVENOX [Suspect]
     Indication: DEEP VEIN THROMBOSIS
     Dosage: RECENT
  5. QUESTRAN [Concomitant]
  6. BUPROPION HYDROCHLORIDE [Concomitant]
  7. DEXILANT [Concomitant]
  8. M.V.I. [Concomitant]
  9. DOXYCYCLINE [Concomitant]
  10. CALCIUM + D [Concomitant]
  11. VIAGRA [Concomitant]
  12. BUDESONIDE [Concomitant]
  13. VITAMIN D [Concomitant]
  14. FINASTERIDE [Concomitant]

REACTIONS (1)
  - INTERNATIONAL NORMALISED RATIO DECREASED [None]
